FAERS Safety Report 8948613 (Version 1)
Quarter: 2012Q4

REPORT INFORMATION
  Report Type: 
  Country: FR (occurrence: FR)
  Receive Date: 20121206
  Receipt Date: 20121206
  Transmission Date: 20130627
  Serious: Yes (Hospitalization, Other)
  Sender: FDA-Public Use
  Company Number: PHHY2012FR110083

PATIENT
  Sex: Male

DRUGS (27)
  1. MYFORTIC [Suspect]
     Dosage: 360 mg, BID
     Route: 048
     Dates: start: 201009
  2. CORTANCYL [Suspect]
     Dosage: 17 kIU, UNK
  3. ZYLORIC [Suspect]
     Dosage: 1 DF, UNK
     Dates: start: 20101018
  4. ZYLORIC [Suspect]
     Dosage: UNK UKN, UNK
     Dates: start: 201008
  5. ZYLORIC [Suspect]
     Dosage: UNK UKN, UNK
     Dates: end: 20120927
  6. BACTRIM [Concomitant]
     Dosage: 800 mg, 3 weekly
  7. CACIT D3 [Concomitant]
     Dosage: 1 DF, UNK
  8. INEXIUM [Concomitant]
     Dosage: 1 DF, UNK
  9. SYMBICORT TU [Concomitant]
     Dosage: 2 Puffs BID
  10. KENZEN [Concomitant]
     Dosage: 8 mg, UNK
  11. LASILIX [Concomitant]
     Dosage: 2 daily
  12. ANAFRANIL [Concomitant]
     Dosage: 75 mg, BID
  13. XANAX [Concomitant]
     Dosage: 0.5 mg, TID
  14. STILNOX [Concomitant]
     Dosage: UNK UKN, UNK
  15. METHOTREXATE [Concomitant]
  16. FOLINIC ACID [Concomitant]
     Dosage: UNK UKN, UNK
  17. CELLCEPT [Concomitant]
     Dosage: 500 mg, UNK
  18. ARANESP [Concomitant]
     Dosage: 40 ug, UNK
     Dates: start: 200706
  19. ARANESP [Concomitant]
     Dosage: 40 ug, UNK
     Dates: start: 20100325
  20. ARANESP [Concomitant]
     Dosage: 40 ug, UNK
     Dates: start: 201007
  21. ARANESP [Concomitant]
     Dosage: 40 ug, UNK
     Dates: start: 20100806
  22. ARANESP [Concomitant]
     Dosage: 40 ug, UNK
     Dates: start: 20101012
  23. ARANESP [Concomitant]
     Dosage: 40 ug, UNK
     Dates: start: 20101018
  24. ARANESP [Concomitant]
     Dosage: 40 ug, UNK
     Dates: start: 20110111
  25. ARANESP [Concomitant]
     Dosage: 40 ug, UNK
     Dates: start: 20120224
  26. ARANESP [Concomitant]
     Dosage: 40 ug, UNK
     Dates: start: 20121010
  27. ENDOXAN [Concomitant]
     Dosage: UNK UKN, UNK
     Dates: start: 199307, end: 199407

REACTIONS (9)
  - Allergic granulomatous angiitis [Unknown]
  - Aplasia pure red cell [Recovering/Resolving]
  - Anaemia [Recovering/Resolving]
  - Clostridium difficile colitis [Unknown]
  - Pulmonary alveolar haemorrhage [Unknown]
  - Renal failure chronic [Unknown]
  - Renal impairment [Unknown]
  - Arthropathy [Unknown]
  - Lymphopenia [Not Recovered/Not Resolved]
